FAERS Safety Report 8060485-9 (Version None)
Quarter: 2012Q1

REPORT INFORMATION
  Report Type: 
  Country: None (occurrence: None)
  Receive Date: 20120120
  Receipt Date: 20120112
  Transmission Date: 20120608
  Serious: Yes (Hospitalization)
  Sender: FDA-Public Use
  Company Number: US-ABBOTT-12P-163-0888777-00

PATIENT
  Sex: Male
  Weight: 113.41 kg

DRUGS (15)
  1. TRIAMCINOLONE [Concomitant]
     Indication: PSORIASIS
  2. CLOBETASOL SOLUTION [Concomitant]
     Indication: PSORIASIS
  3. DOXYCYCLINE [Concomitant]
     Indication: PSORIASIS
  4. ASPIRIN [Concomitant]
     Indication: PROPHYLAXIS
     Dates: start: 20070101
  5. VACTICAL OINTMENT [Concomitant]
     Indication: PSORIASIS
  6. CLOBETASOL PROPIONATE [Concomitant]
     Indication: PSORIASIS
     Route: 061
  7. HUMIRA [Suspect]
     Indication: PSORIASIS
     Dosage: ONCE
     Route: 058
     Dates: start: 20111129, end: 20111129
  8. EXFORGE HCT [Concomitant]
     Indication: HYPERTENSION
     Dates: start: 20110901
  9. NIZORAL [Concomitant]
     Indication: PSORIASIS
  10. HUMIRA [Suspect]
     Route: 058
     Dates: start: 20111206
  11. T/GEL [Concomitant]
     Indication: PSORIASIS
  12. PRAVASTATIN [Concomitant]
     Indication: BLOOD CHOLESTEROL INCREASED
     Dates: start: 20100101
  13. DOVONEX [Concomitant]
     Indication: PSORIASIS
  14. KEFLEX [Concomitant]
     Indication: PSORIASIS
  15. MOISTUREL [Concomitant]
     Indication: PSORIASIS

REACTIONS (1)
  - OEDEMA [None]
